FAERS Safety Report 23951722 (Version 1)
Quarter: 2024Q2

REPORT INFORMATION
  Report Type: Spontaneous
  Country: DE (occurrence: None)
  Receive Date: 20240607
  Receipt Date: 20240607
  Transmission Date: 20240716
  Serious: Yes (Hospitalization)
  Sender: FDA-Public Use
  Company Number: 2024A128054

PATIENT
  Age: 27386 Day
  Sex: Male
  Weight: 98 kg

DRUGS (1)
  1. DAPAGLIFLOZIN [Suspect]
     Active Substance: DAPAGLIFLOZIN
     Indication: Fluid retention
     Route: 048
     Dates: start: 20240515, end: 20240518

REACTIONS (3)
  - Urinary tract infection [Unknown]
  - Haemorrhage urinary tract [Unknown]
  - Axillary pain [Unknown]

NARRATIVE: CASE EVENT DATE: 20240516
